FAERS Safety Report 16588945 (Version 2)
Quarter: 2019Q3

REPORT INFORMATION
  Report Type: Spontaneous
  Country: RO (occurrence: RO)
  Receive Date: 20190718
  Receipt Date: 20190730
  Transmission Date: 20191004
  Serious: Yes (Other)
  Sender: FDA-Public Use
  Company Number: RO-TEVA-2019-RO-1080070

PATIENT
  Age: 32 Year
  Sex: Male

DRUGS (6)
  1. CISPLATIN. [Suspect]
     Active Substance: CISPLATIN
     Indication: HODGKIN^S DISEASE
     Dosage: ONE COURSE
     Route: 065
     Dates: start: 2017, end: 2017
  2. CYTARABINE. [Suspect]
     Active Substance: CYTARABINE
     Indication: HODGKIN^S DISEASE
     Dosage: ONE COURSE
     Route: 065
     Dates: start: 2017, end: 2017
  3. LIPOSOMAL DOXORUBICIN [Suspect]
     Active Substance: DOXORUBICIN HYDROCHLORIDE
     Indication: HODGKIN^S DISEASE
     Dosage: SIX COURSES
     Route: 065
     Dates: start: 201801, end: 201804
  4. DEXAMETHASONE. [Suspect]
     Active Substance: DEXAMETHASONE
     Indication: HODGKIN^S DISEASE
     Dosage: ONE COURSE
     Route: 065
     Dates: start: 2017, end: 2017
  5. VINORELBINE [Suspect]
     Active Substance: VINORELBINE TARTRATE
     Indication: HODGKIN^S DISEASE
     Dosage: SIX COURSES
     Route: 065
     Dates: start: 201801, end: 201804
  6. GEMCITABINE. [Suspect]
     Active Substance: GEMCITABINE
     Indication: HODGKIN^S DISEASE
     Dosage: SIX COURSES
     Route: 065
     Dates: start: 201801, end: 201804

REACTIONS (3)
  - Pancytopenia [Unknown]
  - Infection [Unknown]
  - Therapy non-responder [Unknown]
